FAERS Safety Report 14800821 (Version 3)
Quarter: 2024Q1

REPORT INFORMATION
  Report Type: Spontaneous
  Country: ES (occurrence: None)
  Receive Date: 20180424
  Receipt Date: 20240218
  Transmission Date: 20240410
  Serious: Yes (Death, Hospitalization, Other)
  Sender: FDA-Public Use
  Company Number: 2018SE53364

PATIENT
  Age: 62 Year
  Sex: Male

DRUGS (28)
  1. QUETIAPINE FUMARATE [Interacting]
     Active Substance: QUETIAPINE FUMARATE
     Indication: Major depression
     Route: 048
  2. QUETIAPINE FUMARATE [Interacting]
     Active Substance: QUETIAPINE FUMARATE
     Indication: Schizophrenia
     Route: 048
  3. QUETIAPINE FUMARATE [Interacting]
     Active Substance: QUETIAPINE FUMARATE
     Indication: Major depression
     Route: 048
  4. QUETIAPINE FUMARATE [Interacting]
     Active Substance: QUETIAPINE FUMARATE
     Indication: Schizophrenia
     Route: 048
  5. QUETIAPINE FUMARATE [Interacting]
     Active Substance: QUETIAPINE FUMARATE
     Indication: Major depression
     Route: 048
  6. QUETIAPINE FUMARATE [Interacting]
     Active Substance: QUETIAPINE FUMARATE
     Indication: Schizophrenia
     Route: 048
  7. QUETIAPINE FUMARATE [Interacting]
     Active Substance: QUETIAPINE FUMARATE
     Indication: Major depression
     Dosage: UNK MG
     Route: 048
  8. QUETIAPINE FUMARATE [Interacting]
     Active Substance: QUETIAPINE FUMARATE
     Indication: Schizophrenia
     Dosage: UNK MG
     Route: 048
  9. FLUTICASONE PROPIONATE\SALMETEROL XINAFOATE [Interacting]
     Active Substance: FLUTICASONE PROPIONATE\SALMETEROL XINAFOATE
     Indication: Asthma
     Dosage: 4 DF,QD
     Route: 065
  10. FLUTICASONE PROPIONATE\SALMETEROL XINAFOATE [Interacting]
     Active Substance: FLUTICASONE PROPIONATE\SALMETEROL XINAFOATE
     Indication: Asthma
     Dosage: 1 DF, BID
     Route: 065
  11. CLONAZEPAM [Interacting]
     Active Substance: CLONAZEPAM
     Indication: Epilepsy
     Route: 065
  12. CLONAZEPAM [Interacting]
     Active Substance: CLONAZEPAM
     Indication: Epilepsy
     Route: 065
  13. TIOTROPIUM BROMIDE [Interacting]
     Active Substance: TIOTROPIUM BROMIDE
     Indication: Chronic obstructive pulmonary disease
     Dosage: 5 UG,QD,2 PUFFS
     Route: 065
  14. TIOTROPIUM BROMIDE [Interacting]
     Active Substance: TIOTROPIUM BROMIDE
     Indication: Chronic obstructive pulmonary disease
     Dosage: 2.5 UG, QD
     Route: 065
  15. LORATADINE [Interacting]
     Active Substance: LORATADINE
     Indication: Rhinitis allergic
     Dosage: 10 MG,QD
     Route: 065
  16. LORATADINE [Interacting]
     Active Substance: LORATADINE
     Indication: Rhinitis allergic
     Dosage: 10 MG,TOTAL
     Route: 065
  17. METFORMIN HYDROCHLORIDE [Suspect]
     Active Substance: METFORMIN HYDROCHLORIDE
     Indication: Type 2 diabetes mellitus
     Dosage: 850 MG,BID
     Route: 065
  18. METFORMIN HYDROCHLORIDE [Suspect]
     Active Substance: METFORMIN HYDROCHLORIDE
     Indication: Type 2 diabetes mellitus
     Dosage: 3400 MG, QD
     Route: 065
  19. HALOPERIDOL [Interacting]
     Active Substance: HALOPERIDOL
     Indication: Neuroleptic malignant syndrome
     Dosage: 5 MG, TID
     Route: 065
  20. HALOPERIDOL [Interacting]
     Active Substance: HALOPERIDOL
     Indication: Psychotic disorder
     Dosage: 5 MG, TID
     Route: 065
  21. HALOPERIDOL [Interacting]
     Active Substance: HALOPERIDOL
     Indication: Neuroleptic malignant syndrome
     Dosage: 45 MG, QD
     Route: 065
  22. HALOPERIDOL [Interacting]
     Active Substance: HALOPERIDOL
     Indication: Psychotic disorder
     Dosage: 45 MG, QD
     Route: 065
  23. VALPROIC ACID [Interacting]
     Active Substance: VALPROIC ACID
     Indication: Mania
     Dosage: 500 MG,TID
     Route: 065
  24. VALPROIC ACID [Interacting]
     Active Substance: VALPROIC ACID
     Indication: Epilepsy
     Dosage: 500 MG,TID
     Route: 065
  25. VALPROIC ACID [Interacting]
     Active Substance: VALPROIC ACID
     Indication: Mania
     Dosage: 4500 MG, QD
     Route: 065
  26. VALPROIC ACID [Interacting]
     Active Substance: VALPROIC ACID
     Indication: Epilepsy
     Dosage: 4500 MG, QD
     Route: 065
  27. LEVOTHYROXINE SODIUM [Interacting]
     Active Substance: LEVOTHYROXINE SODIUM
     Indication: Hypothyroidism
     Dosage: 150 UG,QD
     Route: 048
  28. LEVOTHYROXINE SODIUM [Interacting]
     Active Substance: LEVOTHYROXINE SODIUM
     Indication: Hypothyroidism
     Dosage: 450 UNK
     Route: 048

REACTIONS (11)
  - Hypothyroidism [Unknown]
  - Off label use [Fatal]
  - Prescribed overdose [Fatal]
  - Ventricular fibrillation [Fatal]
  - Pruritus [Unknown]
  - Drug interaction [Fatal]
  - Hyperprolactinaemia [Fatal]
  - Coma [Fatal]
  - Loss of consciousness [Not Recovered/Not Resolved]
  - Cardiac failure [Fatal]
  - Type 2 diabetes mellitus [Unknown]
